FAERS Safety Report 10341566 (Version 5)
Quarter: 2014Q3

REPORT INFORMATION
  Report Type: Spontaneous
  Country: US (occurrence: None)
  Receive Date: 20140723
  Receipt Date: 20140827
  Transmission Date: 20150326
  Serious: Yes (Hospitalization, Other)
  Sender: FDA-Public Use
  Company Number: UNT-2014-004007

PATIENT
  Age: 67 Year
  Sex: Female
  Weight: 52.6 kg

DRUGS (8)
  1. ALDACTONE [Concomitant]
     Active Substance: SPIRONOLACTONE
  2. ORENITRAM [Suspect]
     Active Substance: TREPROSTINIL
     Indication: CONNECTIVE TISSUE DISORDER
     Route: 048
     Dates: start: 20140630
  3. REVATIO (SILDENAFIL CITRATE) UNKNOWN [Concomitant]
  4. LETAIRIS (AMBRISENTAN) UNKNOWN [Concomitant]
  5. COUMADIN [Concomitant]
     Active Substance: WARFARIN SODIUM
  6. LASIX [Concomitant]
     Active Substance: FUROSEMIDE
  7. ORENITRAM [Suspect]
     Active Substance: TREPROSTINIL
     Indication: PULMONARY HYPERTENSION
     Route: 048
     Dates: start: 20140630
  8. REMODULIN [Suspect]
     Active Substance: TREPROSTINIL
     Indication: PULMONARY HYPERTENSION
     Route: 058

REACTIONS (13)
  - Skin turgor decreased [None]
  - Disease recurrence [None]
  - Scleroderma [None]
  - Malabsorption [None]
  - Gastrointestinal motility disorder [None]
  - Decreased appetite [None]
  - Dyspnoea [None]
  - Poor venous access [None]
  - Pulmonary function test abnormal [None]
  - Treatment failure [None]
  - Malaise [None]
  - Abdominal distension [None]
  - Pulmonary arterial hypertension [None]

NARRATIVE: CASE EVENT DATE: 20140707
